FAERS Safety Report 6190751-3 (Version None)
Quarter: 2009Q2

REPORT INFORMATION
  Report Type: 
  Country: None (occurrence: None)
  Receive Date: 20090514
  Receipt Date: 20090507
  Transmission Date: 20091009
  Serious: Yes (Hospitalization, Other)
  Sender: FDA-Public Use
  Company Number: US-ELI_LILLY_AND_COMPANY-US200905001331

PATIENT
  Sex: Female

DRUGS (9)
  1. HUMALOG [Suspect]
     Route: 058
  2. MORPHINE [Concomitant]
  3. METHADONE HCL [Concomitant]
  4. HYDROCODONE BITARTRATE [Concomitant]
  5. NAPROSYN [Concomitant]
  6. PROVIGIL [Concomitant]
  7. FLEXERIL [Concomitant]
  8. LORAZEPAM [Concomitant]
  9. RITALIN [Concomitant]

REACTIONS (4)
  - BLOOD GLUCOSE INCREASED [None]
  - DIABETIC KETOACIDOSIS [None]
  - LETHARGY [None]
  - UNRESPONSIVE TO STIMULI [None]
